FAERS Safety Report 14569633 (Version 1)
Quarter: 2018Q1

REPORT INFORMATION
  Report Type: Spontaneous
  Country: US (occurrence: US)
  Receive Date: 20180224
  Receipt Date: 20180224
  Transmission Date: 20180509
  Serious: No
  Sender: FDA-Public Use
  Company Number: US-009507513-1801USA013823

PATIENT
  Sex: Female

DRUGS (4)
  1. ASMANEX [Suspect]
     Active Substance: MOMETASONE FUROATE
     Indication: ASTHMA
     Dosage: 220 MICROGRAM/ ACTUATION, A COUPLE OF INHALATION, EVERY DAY, ROUTE: INHALATION
     Route: 055
     Dates: start: 2013
  2. POTASSIUM (UNSPECIFIED) [Concomitant]
     Active Substance: POTASSIUM
  3. ALLERGENIC EXTRACT [Concomitant]
     Active Substance: ALLERGENIC EXTRACTS
     Dosage: UNK, BIW
  4. PRINIVIL [Concomitant]
     Active Substance: LISINOPRIL

REACTIONS (4)
  - Cough [Unknown]
  - Product quality issue [Unknown]
  - Drug dose omission [Unknown]
  - Product use issue [Unknown]
